FAERS Safety Report 6297291-1 (Version None)
Quarter: 2009Q3

REPORT INFORMATION
  Report Type: 
  Country: None (occurrence: None)
  Receive Date: 20090805
  Receipt Date: 20090724
  Transmission Date: 20100115
  Serious: Yes (Hospitalization)
  Sender: FDA-Public Use
  Company Number: CH-PFIZER INC-2009245106

PATIENT
  Age: 78 Year

DRUGS (1)
  1. DALACIN [Suspect]
     Dosage: 150 MG, 1X/DAY
     Route: 048
     Dates: start: 20090624, end: 20090624

REACTIONS (8)
  - CAPSULE ISSUE [None]
  - CHOKING [None]
  - LARYNGEAL HAEMORRHAGE [None]
  - LARYNGITIS [None]
  - ODYNOPHAGIA [None]
  - OROPHARYNGEAL PAIN [None]
  - PHARYNGEAL OEDEMA [None]
  - PHARYNGITIS [None]
